FAERS Safety Report 20843301 (Version 1)
Quarter: 2022Q2

REPORT INFORMATION
  Report Type: Spontaneous
  Country: None (occurrence: US)
  Receive Date: 20220518
  Receipt Date: 20220518
  Transmission Date: 20220721
  Serious: Yes (Death, Other)
  Sender: FDA-Public Use
  Company Number: US-Glenmark Generics Europe Ltd.-GGEL20110800780

PATIENT
  Age: 57 Year
  Sex: Female

DRUGS (1)
  1. METFORMIN HYDROCHLORIDE [Suspect]
     Active Substance: METFORMIN HYDROCHLORIDE
     Indication: Hyperglycaemia
     Dosage: UNK
     Route: 048

REACTIONS (11)
  - Cardiac arrest [Fatal]
  - Myocardial infarction [Fatal]
  - Ventricular tachycardia [Fatal]
  - Sepsis [Unknown]
  - Lactic acidosis [Fatal]
  - Toxicity to various agents [Not Recovered/Not Resolved]
  - Lethargy [Unknown]
  - Metabolic acidosis [Unknown]
  - Dyspnoea [Not Recovered/Not Resolved]
  - Vomiting [Unknown]
  - Abdominal pain [Unknown]
